FAERS Safety Report 10233431 (Version 1)
Quarter: 2014Q2

REPORT INFORMATION
  Report Type: Spontaneous
  Country: US (occurrence: US)
  Receive Date: 20140612
  Receipt Date: 20140612
  Transmission Date: 20141212
  Serious: No
  Sender: FDA-Public Use
  Company Number: US-ASTRAZENECA-2014SE36806

PATIENT
  Age: 80 Year
  Sex: Female

DRUGS (3)
  1. SYMBICORT [Suspect]
     Indication: CHRONIC OBSTRUCTIVE PULMONARY DISEASE
     Route: 055
     Dates: end: 20140527
  2. OXYGEN [Concomitant]
  3. ALBUTEROL [Concomitant]
     Dosage: FOUR TIMES A DAY

REACTIONS (2)
  - Feeling abnormal [Unknown]
  - Dyspnoea [Unknown]
